FAERS Safety Report 6192209-4 (Version None)
Quarter: 2009Q2

REPORT INFORMATION
  Report Type: 
  Country: None (occurrence: None)
  Receive Date: 20090515
  Receipt Date: 20090506
  Transmission Date: 20091009
  Serious: Yes (Hospitalization)
  Sender: FDA-Public Use
  Company Number: DE-ABBOTT-09P-062-0572085-00

PATIENT
  Age: 37 Year
  Sex: Female
  Weight: 93 kg

DRUGS (7)
  1. HUMIRA [Suspect]
     Indication: CROHN'S DISEASE
     Route: 058
     Dates: start: 20090302, end: 20090302
  2. PANTOPRAZOLE SODIUM [Suspect]
     Indication: PROPHYLAXIS AGAINST GASTROINTESTINAL ULCER
     Route: 048
     Dates: start: 20080301
  3. PREDNISOLONE [Suspect]
     Indication: CROHN'S DISEASE
     Route: 048
     Dates: start: 20090226, end: 20090304
  4. PREDNISOLONE [Suspect]
     Route: 048
     Dates: start: 19990101, end: 20090225
  5. PENTASA [Suspect]
     Indication: CROHN'S DISEASE
     Route: 048
     Dates: start: 20090226
  6. PREDNISOLONE [Concomitant]
     Dates: start: 19990101, end: 20090226
  7. MOXIFLOXACIN HCL [Concomitant]
     Indication: ANTIBIOTIC THERAPY
     Dates: start: 20090303

REACTIONS (6)
  - CANDIDIASIS [None]
  - CHEST DISCOMFORT [None]
  - DYSPNOEA [None]
  - RESPIRATORY TRACT INFECTION [None]
  - VAGINAL DISCHARGE [None]
  - VERTIGO [None]
